FAERS Safety Report 17089727 (Version 4)
Quarter: 2020Q1

REPORT INFORMATION
  Report Type: Spontaneous
  Country: US (occurrence: US)
  Receive Date: 20191128
  Receipt Date: 20200312
  Transmission Date: 20200409
  Serious: No
  Sender: FDA-Public Use
  Company Number: US-TAKEDA-2019TUS067522

PATIENT
  Sex: Male
  Weight: 73.02 kg

DRUGS (2)
  1. DEXAMETHASONE. [Suspect]
     Active Substance: DEXAMETHASONE
     Indication: PRODUCT USED FOR UNKNOWN INDICATION
     Dosage: UNK
     Route: 065
  2. NINLARO [Suspect]
     Active Substance: IXAZOMIB CITRATE
     Indication: PLASMA CELL MYELOMA
     Dosage: 4 MILLIGRAM
     Route: 048
     Dates: start: 20190212

REACTIONS (8)
  - Neuropathy peripheral [Unknown]
  - Dental caries [Unknown]
  - Diabetes mellitus [Unknown]
  - Tooth disorder [Unknown]
  - Blood glucose increased [Unknown]
  - Insomnia [Unknown]
  - Scleroderma [Unknown]
  - Medication error [Unknown]
